FAERS Safety Report 18664941 (Version 1)
Quarter: 2020Q4

REPORT INFORMATION
  Report Type: Report from Study
  Country: US (occurrence: US)
  Receive Date: 20201225
  Receipt Date: 20201225
  Transmission Date: 20210114
  Serious: Yes (Hospitalization, Other)
  Sender: FDA-Public Use
  Company Number: US-TAKEDA-US202004914

PATIENT
  Sex: Male

DRUGS (9)
  1. PARATHYROID HORMONE [Suspect]
     Active Substance: PARATHYROID HORMONE
     Indication: HYPOPARATHYROIDISM
     Dosage: 50 MICROGRAM, QD
     Route: 050
     Dates: start: 20190731
  2. PARATHYROID HORMONE [Suspect]
     Active Substance: PARATHYROID HORMONE
     Dosage: UNK UNK, 1X/2WKS
     Route: 050
  3. PARATHYROID HORMONE [Suspect]
     Active Substance: PARATHYROID HORMONE
     Dosage: UNK UNK, 1X/2WKS
     Route: 050
  4. PARATHYROID HORMONE [Suspect]
     Active Substance: PARATHYROID HORMONE
     Dosage: UNK UNK, 1X/DAY:QD
     Route: 050
  5. PARATHYROID HORMONE [Suspect]
     Active Substance: PARATHYROID HORMONE
     Dosage: UNK UNK, 1X/2WKS
     Route: 050
  6. PARATHYROID HORMONE [Suspect]
     Active Substance: PARATHYROID HORMONE
     Dosage: UNK UNK, 1X/DAY:QD
     Route: 050
  7. PARATHYROID HORMONE [Suspect]
     Active Substance: PARATHYROID HORMONE
     Dosage: UNK UNK, 1X/DAY:QD
     Route: 050
  8. PARATHYROID HORMONE [Suspect]
     Active Substance: PARATHYROID HORMONE
     Indication: HYPOPARATHYROIDISM
     Dosage: 50 MICROGRAM, QD
     Route: 050
     Dates: start: 20190731
  9. PARATHYROID HORMONE [Suspect]
     Active Substance: PARATHYROID HORMONE
     Indication: HYPOPARATHYROIDISM
     Dosage: 50 MICROGRAM, QD
     Route: 050
     Dates: start: 20190731

REACTIONS (5)
  - Blood calcium decreased [Unknown]
  - Incorrect dose administered [Unknown]
  - Hospitalisation [Recovered/Resolved]
  - Product dose omission issue [Unknown]
  - Off label use [Unknown]
